FAERS Safety Report 5928441-1 (Version None)
Quarter: 2008Q4

REPORT INFORMATION
  Report Type: 
  Country: None (occurrence: None)
  Receive Date: 20081023
  Receipt Date: 20081014
  Transmission Date: 20090506
  Serious: Yes (Hospitalization)
  Sender: FDA-Public Use
  Company Number: BE-PFIZER INC-2008086713

PATIENT
  Sex: Male

DRUGS (3)
  1. SUTENT [Suspect]
     Indication: METASTATIC RENAL CELL CARCINOMA
     Dates: start: 20060822, end: 20060830
  2. SUTENT [Suspect]
     Route: 048
     Dates: start: 20060831
  3. AUGMENTIN '125' [Concomitant]
     Dates: start: 20060822, end: 20060831

REACTIONS (1)
  - PLEURAL EFFUSION [None]
